FAERS Safety Report 5983115-6 (Version None)
Quarter: 2008Q4

REPORT INFORMATION
  Report Type: 
  Country: None (occurrence: None)
  Receive Date: 20081208
  Receipt Date: 20081126
  Transmission Date: 20090506
  Serious: Yes (Other)
  Sender: FDA-Public Use
  Company Number: JP-TEVA-181618ISR

PATIENT
  Age: 5 Month
  Sex: Male

DRUGS (2)
  1. CISPLATIN [Suspect]
     Indication: HEPATOBLASTOMA
  2. DOXORUBICIN HCL [Concomitant]

REACTIONS (1)
  - HYDROCEPHALUS [None]
